FAERS Safety Report 24992973 (Version 1)
Quarter: 2025Q1

REPORT INFORMATION
  Report Type: Spontaneous
  Country: CM (occurrence: CM)
  Receive Date: 20250221
  Receipt Date: 20250221
  Transmission Date: 20250409
  Serious: Yes (Life-Threatening, Hospitalization)
  Sender: STRIDES
  Company Number: None

PATIENT
  Age: 29 Year
  Sex: Male

DRUGS (2)
  1. DICLOFENAC [Suspect]
     Active Substance: DICLOFENAC
     Indication: Skin ulcer
     Route: 065
  2. DEXAMETHASONE [Suspect]
     Active Substance: DEXAMETHASONE
     Indication: Skin ulcer
     Route: 065

REACTIONS (7)
  - Shock haemorrhagic [None]
  - Upper gastrointestinal haemorrhage [None]
  - Duodenal ulcer perforation [None]
  - Acute kidney injury [None]
  - Hypochromic anaemia [None]
  - Pancreatitis [None]
  - Product use in unapproved indication [Unknown]
